FAERS Safety Report 4471422-8 (Version None)
Quarter: 2004Q4

REPORT INFORMATION
  Report Type: 
  Country: None (occurrence: None)
  Receive Date: 20041007
  Receipt Date: 20041007
  Transmission Date: 20050328
  Serious: Yes (Hospitalization, Disabling)
  Sender: FDA-Public Use
  Company Number: None

PATIENT
  Age: 87 Year
  Sex: Male
  Weight: 79.3795 kg

DRUGS (1)
  1. VIOXX [Suspect]
     Indication: ARTHRITIS
     Dosage: 1  25MG  TAB  DAILY  ORAL
     Route: 048
     Dates: start: 20000601, end: 20040930

REACTIONS (3)
  - CEREBRAL INFARCTION [None]
  - CIRCULATORY COLLAPSE [None]
  - CONFUSIONAL STATE [None]
